FAERS Safety Report 18813537 (Version 1)
Quarter: 2021Q1

REPORT INFORMATION
  Report Type: Report from Study
  Country: FR (occurrence: FR)
  Receive Date: 20210201
  Receipt Date: 20210201
  Transmission Date: 20210419
  Serious: Yes (Other)
  Sender: FDA-Public Use
  Company Number: FR-US-PROVELL PHARMACEUTICALS LLC-9214013

PATIENT
  Sex: Female

DRUGS (2)
  1. LEVOTHYROX [Suspect]
     Active Substance: LEVOTHYROXINE
     Indication: GOITRE
     Dosage: NEW FORMULATION
  2. LEVOTHYROX [Suspect]
     Active Substance: LEVOTHYROXINE
     Indication: AUTOIMMUNE THYROIDITIS
     Dosage: OLD FORMULATION

REACTIONS (18)
  - Pollakiuria [Recovered/Resolved]
  - Dizziness [Unknown]
  - Renal failure [Unknown]
  - Alopecia [Recovering/Resolving]
  - Diarrhoea [Recovered/Resolved]
  - Hypotension [Unknown]
  - Presyncope [Unknown]
  - Thyroid cancer [Unknown]
  - Anxiety [Unknown]
  - Weight decreased [Unknown]
  - Weight increased [Unknown]
  - Headache [Unknown]
  - Blood thyroid stimulating hormone decreased [Unknown]
  - Tinnitus [Unknown]
  - Vision blurred [Unknown]
  - Nervousness [Unknown]
  - Tachycardia [Unknown]
  - White blood cell count increased [Unknown]
